FAERS Safety Report 25500022 (Version 1)
Quarter: 2025Q3

REPORT INFORMATION
  Report Type: Other
  Country: CN (occurrence: None)
  Receive Date: 20250701
  Receipt Date: 20250701
  Transmission Date: 20251021
  Serious: Yes (Life-Threatening, Hospitalization, Other)
  Sender: INCYTE
  Company Number: CN-002147023-NVSC2025CN104068

PATIENT
  Age: 9 Year

DRUGS (2)
  1. RUXOLITINIB [Suspect]
     Active Substance: RUXOLITINIB
     Indication: Chronic myeloid leukaemia
     Dosage: 5.000 MG, BID
  2. DECITABINE [Suspect]
     Active Substance: DECITABINE
     Indication: Stem cell transplant
     Dosage: 4.800 MG, QD

REACTIONS (2)
  - Myelosuppression [Recovering/Resolving]
  - Off label use [Unknown]
